FAERS Safety Report 5309652-5 (Version None)
Quarter: 2007Q2

REPORT INFORMATION
  Report Type: 
  Country: None (occurrence: None)
  Receive Date: 20070427
  Receipt Date: 20061025
  Transmission Date: 20071010
  Serious: No
  Sender: FDA-Public Use
  Company Number: US-GLAXOSMITHKLINE-A0615086A

PATIENT
  Age: 65 Year
  Sex: Male

DRUGS (8)
  1. DEXEDRINE [Suspect]
     Indication: NARCOLEPSY
     Dosage: 40MG PER DAY
     Route: 048
     Dates: start: 20060501
  2. WELCHOL [Concomitant]
  3. VERAPAMIL [Concomitant]
  4. COREG [Concomitant]
  5. ALTACE [Concomitant]
  6. ACTOS [Concomitant]
  7. ZETIA [Concomitant]
  8. ZOLOFT [Concomitant]

REACTIONS (1)
  - DRUG INEFFECTIVE [None]
